FAERS Safety Report 4656708-6 (Version None)
Quarter: 2005Q2

REPORT INFORMATION
  Report Type: 
  Country: None (occurrence: None)
  Receive Date: 20050509
  Receipt Date: 20050307
  Transmission Date: 20051028
  Serious: Yes (Other)
  Sender: FDA-Public Use
  Company Number: PHNU2005DE01240

PATIENT
  Age: 60 Year
  Sex: Male
  Weight: 83 kg

DRUGS (4)
  1. ZOMETA [Suspect]
     Indication: BREAST CANCER MALE
     Dosage: 4 MG, QMO
     Dates: start: 20021002
  2. GEMZAR [Concomitant]
     Dates: start: 20030101, end: 20030201
  3. OXALIPLATIN [Concomitant]
     Dates: start: 20021101, end: 20021201
  4. DEXAMETHASONE [Concomitant]
     Dates: start: 20030101, end: 20030201

REACTIONS (10)
  - BONE DISORDER [None]
  - IMPAIRED HEALING [None]
  - LOCAL ANAESTHESIA [None]
  - ORAL SURGERY [None]
  - OSTEOMYELITIS [None]
  - OSTEONECROSIS [None]
  - SEQUESTRECTOMY [None]
  - SUTURE REMOVAL [None]
  - TOOTH EXTRACTION [None]
  - WOUND TREATMENT [None]
